FAERS Safety Report 7997739-8 (Version None)
Quarter: 2011Q4

REPORT INFORMATION
  Report Type: 
  Country: None (occurrence: None)
  Receive Date: 20111221
  Receipt Date: 20111206
  Transmission Date: 20120403
  Serious: Yes (Hospitalization)
  Sender: FDA-Public Use
  Company Number: CH-ROCHE-1019760

PATIENT
  Age: 80 Year
  Sex: Female
  Weight: 61 kg

DRUGS (20)
  1. OXYCODONE HYDROCHLORIDE [Suspect]
     Indication: PAIN
     Route: 048
  2. BISOPROLOL FUMARATE [Concomitant]
     Route: 065
  3. PREGABALIN [Suspect]
     Indication: PRODUCT USED FOR UNKNOWN INDICATION
     Route: 048
     Dates: end: 20110208
  4. ASPIRIN [Concomitant]
     Route: 065
  5. MAGNESIOCARD [Concomitant]
     Route: 065
  6. PARAGOL [Concomitant]
     Route: 065
  7. DUPHALAC [Concomitant]
     Route: 065
  8. MIDAZOLAM MALEATE [Suspect]
     Indication: PRODUCT USED FOR UNKNOWN INDICATION
     Route: 048
  9. OXAZEPAM [Suspect]
     Indication: PRODUCT USED FOR UNKNOWN INDICATION
     Dosage: DOSE REDUCED
     Route: 048
  10. TORSEMIDE [Interacting]
     Indication: PRODUCT USED FOR UNKNOWN INDICATION
     Route: 048
     Dates: start: 20110201, end: 20110208
  11. METOLAZONE [Interacting]
     Indication: ESSENTIAL HYPERTENSION
     Route: 048
     Dates: start: 20110101, end: 20110208
  12. BUPRENORPHINE HCL [Suspect]
     Indication: PAIN
     Dosage: CONTINUING
     Route: 062
     Dates: start: 20110101
  13. DUSPATALIN [Concomitant]
     Route: 065
  14. CALCIMAGON [Concomitant]
     Route: 065
  15. VITALUX [Concomitant]
     Route: 065
  16. NOVALGIN [Concomitant]
     Route: 065
  17. PERENTEROL [Concomitant]
     Route: 065
  18. RAMIPRIL [Interacting]
     Indication: ESSENTIAL HYPERTENSION
     Dosage: DURATION OF USE CONTINUING
     Route: 048
     Dates: end: 20110208
  19. TRIMIPRAMINE MALEATE [Suspect]
     Indication: PRODUCT USED FOR UNKNOWN INDICATION
     Dosage: SHORT TERM
     Route: 048
     Dates: start: 20110101, end: 20110201
  20. PANTOPRAZOLE SODIUM [Concomitant]
     Route: 065

REACTIONS (7)
  - CONFUSIONAL STATE [None]
  - RENAL FAILURE ACUTE [None]
  - DISORIENTATION [None]
  - THERAPEUTIC RESPONSE INCREASED [None]
  - MEDICATION ERROR [None]
  - HYPONATRAEMIA [None]
  - DELIRIUM [None]
